FAERS Safety Report 6980471-7 (Version None)
Quarter: 2010Q3

REPORT INFORMATION
  Report Type: 
  Country: None (occurrence: None)
  Receive Date: 20100909
  Receipt Date: 20100826
  Transmission Date: 20110219
  Serious: Yes (Hospitalization)
  Sender: FDA-Public Use
  Company Number: 1000016064

PATIENT
  Age: 36 Year
  Sex: Female

DRUGS (2)
  1. ESCITALOPRAM [Suspect]
     Indication: BURNOUT SYNDROME
     Dosage: 5 TO 15 MG PER DAY (1 IN 1 D),ORAL
     Route: 048
     Dates: start: 20030101, end: 20100801
  2. ESCITALOPRAM [Suspect]
     Indication: DEPRESSION
     Dosage: 5 TO 15 MG PER DAY (1 IN 1 D),ORAL
     Route: 048
     Dates: start: 20030101, end: 20100801

REACTIONS (4)
  - ASTHENIA [None]
  - DYSKINESIA [None]
  - FATIGUE [None]
  - SLEEP DISORDER [None]
